FAERS Safety Report 15723992 (Version 1)
Quarter: 2018Q4

REPORT INFORMATION
  Report Type: Spontaneous
  Country: US (occurrence: US)
  Receive Date: 20181214
  Receipt Date: 20181214
  Transmission Date: 20190205
  Serious: No
  Sender: FDA-Public Use
  Company Number: US-SUNOVION-2018SUN004741

PATIENT
  Age: 27 Year
  Sex: Male
  Weight: 122.45 kg

DRUGS (5)
  1. LATUDA [Suspect]
     Active Substance: LURASIDONE HYDROCHLORIDE
     Indication: BIPOLAR DISORDER
     Dosage: 20 MG, ONE TAB EVERY EVENING
     Route: 048
     Dates: start: 201811
  2. LITHIUM. [Concomitant]
     Active Substance: LITHIUM
     Dosage: UNK
  3. LATUDA [Suspect]
     Active Substance: LURASIDONE HYDROCHLORIDE
     Dosage: UNK,
     Route: 048
  4. TRINTELLIX [Concomitant]
     Active Substance: VORTIOXETINE HYDROBROMIDE
     Dosage: UNK
  5. LATUDA [Suspect]
     Active Substance: LURASIDONE HYDROCHLORIDE
     Dosage: 20 MG, ONE TABQA
     Route: 048
     Dates: start: 201811, end: 201811

REACTIONS (6)
  - Product dose omission [Not Recovered/Not Resolved]
  - Depressed mood [Not Recovered/Not Resolved]
  - Mood altered [Not Recovered/Not Resolved]
  - Off label use [Not Recovered/Not Resolved]
  - Feeling abnormal [Not Recovered/Not Resolved]
  - Agitation [Not Recovered/Not Resolved]

NARRATIVE: CASE EVENT DATE: 201811
